FAERS Safety Report 11798305 (Version 1)
Quarter: 2015Q4

REPORT INFORMATION
  Report Type: Spontaneous
  Country: IN (occurrence: GB)
  Receive Date: 20151203
  Receipt Date: 20151203
  Transmission Date: 20160305
  Serious: Yes (Other)
  Sender: FDA-Public Use
  Company Number: GB-TEVA-614671ISR

PATIENT
  Age: 44 Year
  Sex: Female

DRUGS (1)
  1. ARSENIC TRIOXIDE (ATO) [Suspect]
     Active Substance: ARSENIC TRIOXIDE
     Route: 065

REACTIONS (3)
  - Myelofibrosis [Unknown]
  - Pancytopenia [Unknown]
  - Drug ineffective [Unknown]
